FAERS Safety Report 16130170 (Version 3)
Quarter: 2019Q4

REPORT INFORMATION
  Report Type: Spontaneous
  Country: US (occurrence: US)
  Receive Date: 20190328
  Receipt Date: 20191202
  Transmission Date: 20200122
  Serious: No
  Sender: FDA-Public Use
  Company Number: US-AMGEN INC.-USASP2019048581

PATIENT

DRUGS (3)
  1. TRIPTAN [OXITRIPTAN] [Concomitant]
     Active Substance: OXITRIPTAN
     Dosage: UNK
  2. AIMOVIG [Suspect]
     Active Substance: ERENUMAB-AOOE
     Indication: MIGRAINE
     Dosage: UNK
     Route: 065
  3. MAXALT [Concomitant]
     Active Substance: RIZATRIPTAN BENZOATE
     Indication: MIGRAINE
     Dosage: UNK

REACTIONS (7)
  - Dizziness [Unknown]
  - Drug ineffective [Unknown]
  - Disturbance in attention [Unknown]
  - Fatigue [Unknown]
  - Dissociative disorder [Unknown]
  - Nocturia [Not Recovered/Not Resolved]
  - Sneezing [Not Recovered/Not Resolved]
